FAERS Safety Report 10973975 (Version 1)
Quarter: 2015Q2

REPORT INFORMATION
  Report Type: Report from Study
  Country: JP (occurrence: JP)
  Receive Date: 20150401
  Receipt Date: 20150401
  Transmission Date: 20150821
  Serious: Yes (Hospitalization, Other)
  Sender: FDA-Public Use
  Company Number: JP-ROCHE-1558364

PATIENT
  Age: 42 Year
  Sex: Female
  Weight: 56 kg

DRUGS (19)
  1. MEDICON (DEXTROMETHORPHAN HYDROBROMIDE) [Concomitant]
     Active Substance: DEXTROMETHORPHAN HYDROBROMIDE
     Route: 065
     Dates: start: 20140520
  2. CELECOX [Concomitant]
     Active Substance: CELECOXIB
     Indication: RHEUMATOID ARTHRITIS
     Route: 065
  3. BIOFERMIN [Concomitant]
     Active Substance: BACILLUS SUBTILIS\LACTOBACILLUS ACIDOPHILUS\STREPTOCOCCUS FAECAIS
     Route: 065
  4. MAGLAX [Concomitant]
     Active Substance: MAGNESIUM OXIDE
     Indication: CHRONIC GASTRITIS
     Route: 065
  5. EMPYNASE P [Concomitant]
     Active Substance: PROTEIN
     Dosage: 3 DOSES
     Route: 065
  6. RIBAVIRIN. [Suspect]
     Active Substance: RIBAVIRIN
     Indication: CHRONIC HEPATITIS C
     Route: 048
     Dates: start: 20140424
  7. CEREKINON [Concomitant]
     Active Substance: TRIMEBUTINE
     Indication: CHRONIC GASTRITIS
     Route: 048
  8. GASTER [Concomitant]
     Active Substance: FAMOTIDINE
     Route: 048
  9. SINLESTAL [Concomitant]
     Route: 065
  10. SIMEPREVIR [Suspect]
     Active Substance: SIMEPREVIR
     Indication: CHRONIC HEPATITIS C
     Route: 048
     Dates: start: 20140424, end: 20140716
  11. ZETIA [Concomitant]
     Active Substance: EZETIMIBE
     Route: 065
  12. CINAL [Concomitant]
     Active Substance: ASCORBIC ACID\CALCIUM PANTOTHENATE
     Route: 065
  13. LOXONIN [Concomitant]
     Active Substance: LOXOPROFEN SODIUM
     Route: 062
     Dates: start: 20140429
  14. EZETIMIBE. [Concomitant]
     Active Substance: EZETIMIBE
     Route: 065
     Dates: start: 20140404
  15. PEG-INTERFERON ALFA 2A [Suspect]
     Active Substance: PEGINTERFERON ALFA-2A
     Indication: CHRONIC HEPATITIS C
     Route: 058
     Dates: start: 20140424
  16. ALLELOCK [Concomitant]
     Active Substance: OLOPATADINE HYDROCHLORIDE
     Route: 048
  17. MYSLEE [Concomitant]
     Active Substance: ZOLPIDEM TARTRATE
     Route: 065
  18. NEXIUM [Concomitant]
     Active Substance: ESOMEPRAZOLE MAGNESIUM
     Route: 065
  19. DEPAS [Concomitant]
     Active Substance: ETIZOLAM

REACTIONS (4)
  - Pruritus [Recovering/Resolving]
  - Transaminases increased [Recovering/Resolving]
  - Vogt-Koyanagi-Harada syndrome [Unknown]
  - Neutrophil count decreased [Recovering/Resolving]

NARRATIVE: CASE EVENT DATE: 20140427
